FAERS Safety Report 4677239-3 (Version None)
Quarter: 2005Q2

REPORT INFORMATION
  Report Type: 
  Country: None (occurrence: None)
  Receive Date: 20050526
  Receipt Date: 20050526
  Transmission Date: 20051028
  Serious: No
  Sender: FDA-Public Use
  Company Number: None

PATIENT
  Age: 37 Year
  Sex: Male
  Weight: 79.3795 kg

DRUGS (2)
  1. CYMBALTA [Suspect]
     Indication: MAJOR DEPRESSION
     Dosage: 60 MG PO
     Route: 048
     Dates: start: 20050406, end: 20050515
  2. KLONOPIN [Concomitant]

REACTIONS (1)
  - SPONTANEOUS PENILE ERECTION [None]
